FAERS Safety Report 15492072 (Version 1)
Quarter: 2018Q4

REPORT INFORMATION
  Report Type: Spontaneous
  Country: US (occurrence: US)
  Receive Date: 20181011
  Receipt Date: 20181011
  Transmission Date: 20190205
  Serious: Yes (Hospitalization)
  Sender: FDA-Public Use
  Company Number: None

PATIENT
  Age: 64 Year
  Sex: Female
  Weight: 81 kg

DRUGS (1)
  1. HALDOL [Suspect]
     Active Substance: HALOPERIDOL
     Indication: EMERGENCY CARE

REACTIONS (5)
  - Crying [None]
  - Pain in extremity [None]
  - Kidney infection [None]
  - Gait disturbance [None]
  - General physical condition abnormal [None]

NARRATIVE: CASE EVENT DATE: 20180810
